FAERS Safety Report 7462558-8 (Version None)
Quarter: 2011Q2

REPORT INFORMATION
  Report Type: 
  Country: None (occurrence: None)
  Receive Date: 20110506
  Receipt Date: 20100707
  Transmission Date: 20111010
  Serious: No
  Sender: FDA-Public Use
  Company Number: US-BAYER-201028855NA

PATIENT
  Sex: Female

DRUGS (3)
  1. ANTIBIOTICS [Concomitant]
     Indication: CYSTITIS NONINFECTIVE
     Dosage: UNK
  2. YAZ [Suspect]
  3. ANTIBIOTICS [Concomitant]
     Indication: PYREXIA

REACTIONS (3)
  - PYREXIA [None]
  - BLEEDING TIME PROLONGED [None]
  - CYSTITIS NONINFECTIVE [None]
